FAERS Safety Report 8041925-8 (Version None)
Quarter: 2012Q1

REPORT INFORMATION
  Report Type: 
  Country: None (occurrence: None)
  Receive Date: 20120112
  Receipt Date: 20120102
  Transmission Date: 20120608
  Serious: Yes (Hospitalization)
  Sender: FDA-Public Use
  Company Number: PHHY2012FR000874

PATIENT
  Age: 47 Year
  Sex: Female

DRUGS (8)
  1. TEGRETOL [Suspect]
     Dosage: 800 MG, DAILY
     Dates: start: 20111011
  2. XYZAL [Concomitant]
     Dates: start: 20110614
  3. SULFARLEM [Concomitant]
     Dosage: 75 MG DAILY
     Dates: start: 20110816
  4. FLUANXOL [Concomitant]
     Dosage: 80 MG, DAILY
  5. TEGRETOL [Suspect]
     Dosage: 400 MG DAILY
     Dates: start: 20110911, end: 20110928
  6. TEGRETOL [Suspect]
     Dosage: 600 MG, UNK
     Dates: start: 20110929, end: 20111010
  7. LORAZEPAM [Concomitant]
  8. LEPTICUR [Concomitant]
     Dosage: 30 MG DAILY
     Dates: start: 20110614

REACTIONS (10)
  - ORAL PAIN [None]
  - DRY SKIN [None]
  - CHEILITIS [None]
  - ORAL HERPES [None]
  - CHAPPED LIPS [None]
  - SKIN EXFOLIATION [None]
  - RASH ERYTHEMATOUS [None]
  - RASH PAPULAR [None]
  - BLISTER [None]
  - HYPERSENSITIVITY [None]
